FAERS Safety Report 26082350 (Version 1)
Quarter: 2025Q4

REPORT INFORMATION
  Report Type: Spontaneous
  Country: EU (occurrence: EU)
  Receive Date: 20251124
  Receipt Date: 20251124
  Transmission Date: 20260118
  Serious: Yes (Other)
  Sender: ASCENT PHARMACEUTICALS INC
  Company Number: EU-ASCENT-2025ASLIT00262

PATIENT
  Age: 26 Year
  Sex: Female

DRUGS (1)
  1. METHYLPHENIDATE HYDROCHLORIDE [Suspect]
     Active Substance: METHYLPHENIDATE HYDROCHLORIDE
     Indication: Attention deficit hyperactivity disorder
     Route: 042

REACTIONS (2)
  - Histiocytosis [Recovering/Resolving]
  - Wrong technique in product usage process [Unknown]
